FAERS Safety Report 19087254 (Version 1)
Quarter: 2021Q2

REPORT INFORMATION
  Report Type: Spontaneous
  Country: US (occurrence: US)
  Receive Date: 20210402
  Receipt Date: 20210402
  Transmission Date: 20210717
  Serious: Yes (Hospitalization)
  Sender: FDA-Public Use
  Company Number: None

PATIENT
  Age: 48 Year
  Sex: Male
  Weight: 96.75 kg

DRUGS (4)
  1. COPAXONE [Suspect]
     Active Substance: GLATIRAMER ACETATE
     Indication: MULTIPLE SCLEROSIS
     Dosage: ?          QUANTITY:1 INJECTION(S);OTHER FREQUENCY:3 TIMES A WEEK;?
     Route: 058
     Dates: start: 20090501, end: 20210210
  2. VITAMIN D [Concomitant]
     Active Substance: VITAMIN D NOS
  3. VITAMIN C [Concomitant]
     Active Substance: ASCORBIC ACID
  4. LOSARTAN. [Concomitant]
     Active Substance: LOSARTAN

REACTIONS (12)
  - Muscle necrosis [None]
  - Injection site reaction [None]
  - Embolia cutis medicamentosa [None]
  - Injection site erythema [None]
  - Injection site hypersensitivity [None]
  - Injection site pain [None]
  - Loss of consciousness [None]
  - Administration site wound [None]
  - Injection site urticaria [None]
  - Cellulitis [None]
  - Injection site discolouration [None]
  - Injection site necrosis [None]

NARRATIVE: CASE EVENT DATE: 20210210
